FAERS Safety Report 13716252 (Version 1)
Quarter: 2017Q3

REPORT INFORMATION
  Report Type: Report from Study
  Country: None (occurrence: BR)
  Receive Date: 20170705
  Receipt Date: 20170705
  Transmission Date: 20171127
  Serious: Yes (Death, Hospitalization)
  Sender: FDA-Public Use
  Company Number: BR-ABBVIE-17K-020-2028250-00

PATIENT
  Sex: Male

DRUGS (1)
  1. HUMIRA [Suspect]
     Active Substance: ADALIMUMAB
     Indication: PSORIASIS
     Route: 058
     Dates: start: 20120101

REACTIONS (5)
  - Lung disorder [Fatal]
  - Feeling abnormal [Unknown]
  - Pyrexia [Unknown]
  - Diabetic metabolic decompensation [Fatal]
  - Dyspnoea [Unknown]
